FAERS Safety Report 13987269 (Version 1)
Quarter: 2017Q3

REPORT INFORMATION
  Report Type: Spontaneous
  Country: US (occurrence: US)
  Receive Date: 20170919
  Receipt Date: 20170919
  Transmission Date: 20171128
  Serious: Yes (Hospitalization)
  Sender: FDA-Public Use
  Company Number: US-ASTELLAS-2017US037362

PATIENT
  Age: 77 Year
  Sex: Male

DRUGS (27)
  1. WARFARIN [Interacting]
     Active Substance: WARFARIN
     Dosage: 45 MG, UNKNOWN FREQ. (WEEKLY DOSE)
     Route: 065
  2. WARFARIN [Interacting]
     Active Substance: WARFARIN
     Dosage: 45 MG, UNKNOWN FREQ. (WEEKLY DOSE)
     Route: 065
  3. ENZALUTAMIDE [Interacting]
     Active Substance: ENZALUTAMIDE
     Dosage: UNK, UNKNOWN FREQ.
     Route: 065
     Dates: start: 20150520
  4. WARFARIN [Interacting]
     Active Substance: WARFARIN
     Dosage: 45 MG, UNKNOWN FREQ. (WEEKLY DOSE)
     Route: 065
  5. WARFARIN [Interacting]
     Active Substance: WARFARIN
     Dosage: 42 MG, UNKNOWN FREQ. (WEEKLY DOSE)
     Route: 065
  6. WARFARIN [Interacting]
     Active Substance: WARFARIN
     Dosage: 57 MG, UNKNOWN FREQ. (WEEKLY DOSE)
     Route: 065
  7. WARFARIN [Interacting]
     Active Substance: WARFARIN
     Indication: DEEP VEIN THROMBOSIS
     Dosage: UNK UNK, UNKNOWN FREQ.
     Route: 065
     Dates: start: 201409
  8. WARFARIN [Interacting]
     Active Substance: WARFARIN
     Dosage: 42 MG, UNKNOWN FREQ. (WEEKLY DOSE)
     Route: 065
  9. WARFARIN [Interacting]
     Active Substance: WARFARIN
     Dosage: 42 MG, UNKNOWN FREQ. (WEEKLY DOSE)
     Route: 065
  10. WARFARIN [Interacting]
     Active Substance: WARFARIN
     Dosage: 63 MG, UNKNOWN FREQ. (WEEKLY DOSE)
     Route: 065
  11. MULTIVITAMIN                       /00097801/ [Concomitant]
     Active Substance: VITAMINS
     Indication: PRODUCT USED FOR UNKNOWN INDICATION
     Dosage: UNK UNK, UNKNOWN FREQ.
     Route: 065
  12. CYANOCOBALAMIN. [Concomitant]
     Active Substance: CYANOCOBALAMIN
     Indication: PRODUCT USED FOR UNKNOWN INDICATION
     Dosage: UNK UNK, UNKNOWN FREQ.
     Route: 065
  13. WARFARIN [Interacting]
     Active Substance: WARFARIN
     Dosage: 42 MG, UNKNOWN FREQ. (WEEKLY DOSE)
     Route: 065
  14. WARFARIN [Interacting]
     Active Substance: WARFARIN
     Dosage: 63 MG, UNKNOWN FREQ. (WEEKLY DOSE)
     Route: 065
  15. WARFARIN [Interacting]
     Active Substance: WARFARIN
     Dosage: 42 MG, UNKNOWN FREQ. (WEEKLY DOSE)
     Route: 065
  16. WARFARIN [Interacting]
     Active Substance: WARFARIN
     Dosage: 45 MG, UNKNOWN FREQ. (WEEKLY DOSE)
     Route: 065
  17. WARFARIN [Interacting]
     Active Substance: WARFARIN
     Dosage: 45 MG, UNKNOWN FREQ. (WEEKLY DOSE)
     Route: 065
  18. WARFARIN [Interacting]
     Active Substance: WARFARIN
     Dosage: 45 MG, UNKNOWN FREQ. (WEEKLY DOSE)
     Route: 065
  19. WARFARIN [Interacting]
     Active Substance: WARFARIN
     Dosage: 45 MG, UNKNOWN FREQ. (WEEKLY DOSE)
     Route: 065
  20. WARFARIN [Interacting]
     Active Substance: WARFARIN
     Dosage: 63 MG, UNKNOWN FREQ. (WEEKLY DOSE)
     Route: 065
  21. ERGOCALCIFEROL. [Concomitant]
     Active Substance: ERGOCALCIFEROL
     Indication: PRODUCT USED FOR UNKNOWN INDICATION
     Dosage: UNK UNK, UNKNOWN FREQ.
     Route: 065
  22. DULOXETINE. [Concomitant]
     Active Substance: DULOXETINE
     Indication: PRODUCT USED FOR UNKNOWN INDICATION
     Dosage: UNK UNK, UNKNOWN FREQ.
     Route: 065
  23. ENZALUTAMIDE [Suspect]
     Active Substance: ENZALUTAMIDE
     Indication: PROSTATE CANCER METASTATIC
     Route: 065
  24. WARFARIN [Interacting]
     Active Substance: WARFARIN
     Dosage: 45 MG, UNKNOWN FREQ. (WEEKLY DOSE)
     Route: 065
  25. WARFARIN [Interacting]
     Active Substance: WARFARIN
     Dosage: 42 MG, UNKNOWN FREQ. (WEEKLY DOSE)
     Route: 065
  26. AMLODIPINE [Concomitant]
     Active Substance: AMLODIPINE BESYLATE
     Indication: PRODUCT USED FOR UNKNOWN INDICATION
     Dosage: UNK UNK, UNKNOWN FREQ.
     Route: 065
  27. GABAPENTIN. [Concomitant]
     Active Substance: GABAPENTIN
     Indication: PRODUCT USED FOR UNKNOWN INDICATION
     Dosage: UNK UNK, UNKNOWN FREQ.
     Route: 065

REACTIONS (2)
  - International normalised ratio fluctuation [Recovered/Resolved]
  - Drug interaction [Unknown]
